FAERS Safety Report 4834548-2 (Version None)
Quarter: 2005Q4

REPORT INFORMATION
  Report Type: 
  Country: None (occurrence: None)
  Receive Date: 20051122
  Receipt Date: 20050228
  Transmission Date: 20060501
  Serious: No
  Sender: FDA-Public Use
  Company Number: US-BRISTOL-MYERS SQUIBB COMPANY-12878849

PATIENT
  Age: 39 Year
  Sex: Male
  Weight: 73 kg

DRUGS (4)
  1. PRAVACHOL [Suspect]
     Indication: BLOOD CHOLESTEROL INCREASED
     Route: 048
     Dates: start: 20050127
  2. LIPITOR [Suspect]
  3. KLONOPIN [Concomitant]
  4. PROTONIX [Concomitant]

REACTIONS (1)
  - PARAESTHESIA [None]
